FAERS Safety Report 8878910 (Version 5)
Quarter: 2013Q1

REPORT INFORMATION
  Report Type: Spontaneous
  Country: US (occurrence: US)
  Receive Date: 20121026
  Receipt Date: 20130109
  Transmission Date: 20140127
  Serious: Yes (Disabling, Other)
  Sender: FDA-Public Use
  Company Number: US-PFIZER INC-2012266657

PATIENT
  Age: 54 Year
  Sex: Female
  Weight: 109 kg

DRUGS (8)
  1. LYRICA [Suspect]
     Indication: FIBROMYALGIA
     Dosage: UNK
     Route: 048
     Dates: end: 20121128
  2. AMLODIPINE [Concomitant]
     Indication: HYPERTENSION
     Dosage: UNK
  3. LISINOPRIL [Concomitant]
     Indication: HYPERTENSION
     Dosage: UNK
  4. ATENOLOL [Concomitant]
     Indication: HYPERTENSION
     Dosage: UNK
  5. HYDROCHLOROTHIAZIDE [Concomitant]
     Indication: HYPERTENSION
     Dosage: UNK
  6. AMITRIPTYLINE [Concomitant]
     Dosage: UNK
  7. CLONAZEPAM [Concomitant]
     Indication: ANXIETY
     Dosage: UNK
  8. HYDROCODONE [Concomitant]
     Dosage: UNK

REACTIONS (7)
  - Gait disturbance [Unknown]
  - Fibromyalgia [Unknown]
  - Memory impairment [Unknown]
  - Pain [Unknown]
  - Osteoporosis [Unknown]
  - Emotional disorder [Unknown]
  - Weight increased [Unknown]
